FAERS Safety Report 22640706 (Version 1)
Quarter: 2023Q2

REPORT INFORMATION
  Report Type: Spontaneous
  Country: NL (occurrence: NL)
  Receive Date: 20230626
  Receipt Date: 20230626
  Transmission Date: 20230722
  Serious: Yes (Other)
  Sender: FDA-Public Use
  Company Number: None

PATIENT
  Sex: Female
  Weight: 77 kg

DRUGS (1)
  1. DILTIAZEM [Suspect]
     Active Substance: DILTIAZEM
     Indication: Hypertension
     Dosage: 200 MILLIGRAM, QD, 1 X PER DAY
     Route: 065
     Dates: start: 20230210, end: 20230426

REACTIONS (2)
  - Central sleep apnoea syndrome [Recovered/Resolved]
  - Condition aggravated [Recovered/Resolved]
